FAERS Safety Report 5669763-1 (Version None)
Quarter: 2008Q1

REPORT INFORMATION
  Report Type: 
  Country: None (occurrence: None)
  Receive Date: 20080313
  Receipt Date: 20080313
  Transmission Date: 20080703
  Serious: Yes (Life-Threatening, Hospitalization)
  Sender: FDA-Public Use
  Company Number: None

PATIENT
  Age: 58 Year
  Sex: Male
  Weight: 110 kg

DRUGS (12)
  1. LISINOPRIL [Suspect]
     Indication: HYPERTENSION
     Dosage: 40 MG DAILY ORAL
     Route: 048
     Dates: start: 20040826, end: 20071007
  2. ALBUTEROL [Concomitant]
  3. AMITRIPTYLINE HCL [Concomitant]
  4. ASPIRIN [Concomitant]
  5. HYDROCODONE 5/ACETAMINOPHEN [Concomitant]
  6. IPRATROPIUM BROMIDE [Concomitant]
  7. LISINOPRIL [Concomitant]
  8. OMEPRAZOLE [Concomitant]
  9. TRIAMCINOLONE ACETONIDE [Concomitant]
  10. UREA [Concomitant]
  11. VARDENAFIL HCL [Concomitant]
  12. HERBAL REMEDIES [Concomitant]

REACTIONS (4)
  - ANGIOEDEMA [None]
  - DYSPNOEA [None]
  - RESPIRATORY DISORDER [None]
  - SWOLLEN TONGUE [None]
